FAERS Safety Report 13880660 (Version 1)
Quarter: 2017Q3

REPORT INFORMATION
  Report Type: Spontaneous
  Country: US (occurrence: US)
  Receive Date: 20170818
  Receipt Date: 20170818
  Transmission Date: 20171127
  Serious: No
  Sender: FDA-Public Use
  Company Number: US-ORPHAN EUROPE-2024776

PATIENT
  Age: 64 Year
  Sex: Male

DRUGS (2)
  1. CYSTADANE [Suspect]
     Active Substance: BETAINE
     Route: 048
     Dates: start: 20170726, end: 20170809
  2. CYSTADANE [Suspect]
     Active Substance: BETAINE
     Indication: PRODUCT USED FOR UNKNOWN INDICATION
     Route: 048
     Dates: start: 20170601

REACTIONS (5)
  - Drug intolerance [Recovered/Resolved]
  - Diarrhoea [Recovering/Resolving]
  - Flatulence [Recovering/Resolving]
  - Abdominal discomfort [Recovering/Resolving]
  - Nausea [Recovering/Resolving]

NARRATIVE: CASE EVENT DATE: 20170604
